FAERS Safety Report 24621931 (Version 1)
Quarter: 2024Q4

REPORT INFORMATION
  Report Type: Spontaneous
  Country: US (occurrence: US)
  Receive Date: 20241114
  Receipt Date: 20241114
  Transmission Date: 20250115
  Serious: No
  Sender: SANOFI AVENTIS
  Company Number: US-SA-2024SA328010

PATIENT
  Sex: Female
  Weight: 111.36 kg

DRUGS (13)
  1. DUPIXENT [Suspect]
     Active Substance: DUPILUMAB
     Indication: Asthma
     Dosage: 300MG, QOW
     Route: 058
     Dates: end: 2024
  2. BUDESONIDE\FORMOTEROL [Concomitant]
     Active Substance: BUDESONIDE\FORMOTEROL
  3. LOSARTAN POTASSIUM [Concomitant]
     Active Substance: LOSARTAN POTASSIUM
  4. FLUCONAZOLE [Concomitant]
     Active Substance: FLUCONAZOLE
  5. DILTIAZEM [Concomitant]
     Active Substance: DILTIAZEM
  6. MIRABEGRON [Concomitant]
     Active Substance: MIRABEGRON
  7. AIRSUPRA [Concomitant]
     Active Substance: ALBUTEROL SULFATE\BUDESONIDE
  8. MONTELUKAST SODIUM [Concomitant]
     Active Substance: MONTELUKAST SODIUM
  9. NAPROXEN [Concomitant]
     Active Substance: NAPROXEN
  10. TOLTERODINE TARTRATE [Concomitant]
     Active Substance: TOLTERODINE TARTRATE
  11. CYCLOBENZAPRINE [Concomitant]
     Active Substance: CYCLOBENZAPRINE
  12. SIMVASTATIN [Concomitant]
     Active Substance: SIMVASTATIN
  13. LATANOPROST [Concomitant]
     Active Substance: LATANOPROST

REACTIONS (2)
  - Gait disturbance [Unknown]
  - Arthralgia [Unknown]
